FAERS Safety Report 18369169 (Version 1)
Quarter: 2020Q4

REPORT INFORMATION
  Report Type: Report from Study
  Country: None (occurrence: US)
  Receive Date: 20201011
  Receipt Date: 20201011
  Transmission Date: 20210114
  Serious: Yes (Other)
  Sender: FDA-Public Use
  Company Number: US-ABBVIE-20K-163-3601544-00

PATIENT
  Age: 67 Year
  Sex: Male

DRUGS (1)
  1. SKYRIZI [Suspect]
     Active Substance: RISANKIZUMAB-RZAA
     Indication: PSORIASIS
     Dosage: ON WEEK 0 AND WEEK 4 THEN EVERY 12 WEEKS (STARTING WEEK 16)
     Route: 058
     Dates: end: 201911

REACTIONS (2)
  - Thermal burn [Unknown]
  - Accident [Unknown]

NARRATIVE: CASE EVENT DATE: 202003
